FAERS Safety Report 6641955-4 (Version None)
Quarter: 2010Q1

REPORT INFORMATION
  Report Type: 
  Country: None (occurrence: None)
  Receive Date: 20100319
  Receipt Date: 20100310
  Transmission Date: 20100710
  Serious: Yes (Hospitalization)
  Sender: FDA-Public Use
  Company Number: KR-ASTRAZENECA-2010SE10500

PATIENT
  Age: 787 Month
  Sex: Female

DRUGS (3)
  1. ARIMIDEX [Suspect]
     Indication: BREAST CANCER
     Route: 048
     Dates: start: 20090210
  2. ATORVASTATIN CALCIUM [Concomitant]
     Indication: HYPERLIPIDAEMIA
     Dates: start: 20090630
  3. CALTEO-40 [Concomitant]
     Indication: OSTEOPENIA
     Dates: start: 20080708

REACTIONS (1)
  - RENAL CELL CARCINOMA [None]
